FAERS Safety Report 8061873-7 (Version None)
Quarter: 2012Q1

REPORT INFORMATION
  Report Type: 
  Country: None (occurrence: None)
  Receive Date: 20120117
  Receipt Date: 20120106
  Transmission Date: 20120608
  Serious: Yes (Death, Other)
  Sender: FDA-Public Use
  Company Number: KAD201201-000002

PATIENT
  Age: 55 Year
  Sex: Male
  Weight: 85.2762 kg

DRUGS (11)
  1. PEGASYS [Suspect]
     Indication: HEPATITIS C
     Dosage: 180 MCG, WEEKLY, SUBCUTANEOUS
     Route: 058
     Dates: start: 20110923, end: 20111211
  2. RIBAVIRIN [Suspect]
     Indication: HEPATITIS C
     Dosage: 400 MG MORNING/600 MG EVENING, DAILY, ORAL
     Route: 048
     Dates: start: 20110923, end: 20111211
  3. FISH OIL [Concomitant]
  4. INCIVEK [Suspect]
     Dosage: 750 MG THREE TIMES DAILY
     Dates: start: 20110923, end: 20111211
  5. SYNTHROID [Concomitant]
  6. ASPIRIN [Concomitant]
  7. IBUPROFEN [Concomitant]
  8. LISINOPRIL [Concomitant]
  9. GLUCOSAMINE CHONDROITIN COMPLEX [Concomitant]
  10. LIVER FORCE [Concomitant]
  11. MVI (MULTIVITAMINS CONCENTRATE) [Concomitant]

REACTIONS (9)
  - AGITATION [None]
  - CONDITION AGGRAVATED [None]
  - ARTHRALGIA [None]
  - MYALGIA [None]
  - SLEEP DISORDER [None]
  - CARDIAC DISORDER [None]
  - ANAEMIA [None]
  - RESPIRATORY DISORDER [None]
  - SCIATICA [None]
